FAERS Safety Report 17190784 (Version 1)
Quarter: 2019Q4

REPORT INFORMATION
  Report Type: Spontaneous
  Country: US (occurrence: US)
  Receive Date: 20191220
  Receipt Date: 20191220
  Transmission Date: 20200122
  Serious: Yes (Other)
  Sender: FDA-Public Use
  Company Number: None

PATIENT
  Age: 37 Year
  Sex: Male
  Weight: 103.5 kg

DRUGS (7)
  1. TOPAMAX [Suspect]
     Active Substance: TOPIRAMATE
     Indication: BIPOLAR DISORDER
     Dosage: ?          QUANTITY:3 TABLET(S);OTHER FREQUENCY:ONE IN AM, TWO IN;?
     Route: 048
     Dates: start: 20181017
  2. TOPAMAX [Suspect]
     Active Substance: TOPIRAMATE
     Indication: WEIGHT CONTROL
     Dosage: ?          QUANTITY:3 TABLET(S);OTHER FREQUENCY:ONE IN AM, TWO IN;?
     Route: 048
     Dates: start: 20181017
  3. LITHIUM. [Concomitant]
     Active Substance: LITHIUM
  4. TOPAMAX [Suspect]
     Active Substance: TOPIRAMATE
     Indication: ANXIETY
     Dosage: ?          QUANTITY:3 TABLET(S);OTHER FREQUENCY:ONE IN AM, TWO IN;?
     Route: 048
     Dates: start: 20181017
  5. CITALOPRAM [Concomitant]
     Active Substance: CITALOPRAM HYDROBROMIDE
  6. TOPAMAX [Suspect]
     Active Substance: TOPIRAMATE
     Indication: SEIZURE
     Dosage: ?          QUANTITY:3 TABLET(S);OTHER FREQUENCY:ONE IN AM, TWO IN;?
     Route: 048
     Dates: start: 20181017
  7. LORAZEPAM. [Concomitant]
     Active Substance: LORAZEPAM

REACTIONS (1)
  - Alopecia [None]

NARRATIVE: CASE EVENT DATE: 20190917
